FAERS Safety Report 5191629-4 (Version None)
Quarter: 2006Q4

REPORT INFORMATION
  Report Type: 
  Country: None (occurrence: None)
  Receive Date: 20061219
  Receipt Date: 20061207
  Transmission Date: 20070319
  Serious: Yes (Death, Hospitalization)
  Sender: FDA-Public Use
  Company Number: 2006BH014579

PATIENT
  Age: 48 Year
  Sex: Female
  Weight: 66.1 kg

DRUGS (5)
  1. DIANEAL [Suspect]
     Indication: RENAL FAILURE CHRONIC
     Dosage: SEE MAGE
     Route: 033
     Dates: start: 20010524, end: 20011101
  2. DIANEAL [Suspect]
     Indication: RENAL FAILURE CHRONIC
     Dosage: SEE MAGE
     Route: 033
     Dates: start: 20010509, end: 20011204
  3. DIANEAL [Suspect]
     Indication: RENAL FAILURE CHRONIC
     Dosage: SEE MAGE
     Route: 033
     Dates: start: 20020205, end: 20020903
  4. DIANEAL [Suspect]
     Indication: RENAL FAILURE CHRONIC
     Dosage: SEE MAGE
     Route: 033
     Dates: start: 20020904, end: 20041124
  5. EXTRANEAL [Suspect]
     Indication: RENAL FAILURE CHRONIC
     Dosage: 2000 ML; EVERY DAY; IP
     Route: 033
     Dates: start: 20020904, end: 20041124

REACTIONS (9)
  - ADHESION [None]
  - CANDIDA SEROLOGY POSITIVE [None]
  - DISEASE PROGRESSION [None]
  - FIBRIN DEGRADATION PRODUCTS INCREASED [None]
  - HAEMODIALYSIS [None]
  - ILEUS PARALYTIC [None]
  - INTESTINAL MASS [None]
  - PERITONITIS BACTERIAL [None]
  - PLATELET COUNT DECREASED [None]
